FAERS Safety Report 7627805-8 (Version None)
Quarter: 2011Q3

REPORT INFORMATION
  Report Type: 
  Country: None (occurrence: None)
  Receive Date: 20110721
  Receipt Date: 20110713
  Transmission Date: 20111222
  Serious: Yes (Hospitalization, Congenital Anomaly, Other)
  Sender: FDA-Public Use
  Company Number: TR-ABBOTT-11P-161-0730265-00

PATIENT
  Age: 2 Day
  Sex: Male
  Weight: 1.9 kg

DRUGS (1)
  1. VALPROATE SODIUM [Suspect]
     Indication: MATERNAL EXPOSURE DURING PREGNANCY
     Route: 064

REACTIONS (14)
  - HYPERTELORISM OF ORBIT [None]
  - RETROGNATHIA [None]
  - FOETAL ANTICONVULSANT SYNDROME [None]
  - PROMINENT EPICANTHAL FOLDS [None]
  - DYSMORPHISM [None]
  - SKULL MALFORMATION [None]
  - CONGENITAL ORAL MALFORMATION [None]
  - LOW SET EARS [None]
  - RESPIRATORY DISTRESS [None]
  - LIMB DEFORMITY [None]
  - MATERNAL EXPOSURE DURING PREGNANCY [None]
  - APGAR SCORE LOW [None]
  - HYPOTHYROIDISM [None]
  - CONGENITAL NOSE MALFORMATION [None]
